FAERS Safety Report 8860252 (Version 2)
Quarter: 2013Q3

REPORT INFORMATION
  Report Type: Report from Study
  Country: JP (occurrence: JP)
  Receive Date: 20121025
  Receipt Date: 20130703
  Transmission Date: 20140515
  Serious: Yes (Other)
  Sender: FDA-Public Use
  Company Number: PHHY2012JP095193

PATIENT
  Age: 40 Year
  Sex: Female
  Weight: 57 kg

DRUGS (27)
  1. LEPONEX / CLOZARIL [Suspect]
     Indication: SCHIZOPHRENIA
     Dosage: 12.5 MG, DAILY
     Route: 048
     Dates: start: 20120322
  2. LEPONEX / CLOZARIL [Suspect]
     Dosage: 25 MG, DAILY
     Route: 048
     Dates: start: 20120323, end: 20120325
  3. LEPONEX / CLOZARIL [Suspect]
     Dosage: 50 MG, DAILY
     Route: 048
     Dates: start: 20120326, end: 20120328
  4. LEPONEX / CLOZARIL [Suspect]
     Dosage: 75 MG, DAILY
     Route: 048
     Dates: start: 20120329, end: 20120330
  5. LEPONEX / CLOZARIL [Suspect]
     Dosage: 100 MG, DAILY
     Route: 048
     Dates: start: 20120331, end: 20120401
  6. LEPONEX / CLOZARIL [Suspect]
     Dosage: 125 MG, DAILY
     Route: 048
     Dates: start: 20120402, end: 20120404
  7. LEPONEX / CLOZARIL [Suspect]
     Dosage: 150 MG, DAILY
     Route: 048
     Dates: start: 20120405, end: 20120407
  8. LEPONEX / CLOZARIL [Suspect]
     Dosage: 175 MG, DAILY
     Route: 048
     Dates: start: 20120408, end: 20120410
  9. LEPONEX / CLOZARIL [Suspect]
     Dosage: 200 MG, DAILY
     Route: 048
     Dates: start: 20120411, end: 20120417
  10. LEPONEX / CLOZARIL [Suspect]
     Dosage: 225 MG, DAILY
     Route: 048
     Dates: start: 20120418, end: 20120424
  11. LEPONEX / CLOZARIL [Suspect]
     Dosage: 250 MG, DAILY
     Route: 048
     Dates: start: 20120425, end: 20120522
  12. LEPONEX / CLOZARIL [Suspect]
     Dosage: 275 MG, DAILY
     Route: 048
     Dates: start: 20120523, end: 20120601
  13. LEPONEX / CLOZARIL [Suspect]
     Dosage: 300 MG, DAILY
     Route: 048
     Dates: start: 20120602, end: 20120612
  14. LEPONEX / CLOZARIL [Suspect]
     Dosage: 350 MG, DAILY
     Route: 048
     Dates: start: 20120613
  15. LEPONEX / CLOZARIL [Suspect]
     Dosage: 550 MG, UNK
     Route: 048
  16. LEPONEX / CLOZARIL [Suspect]
     Dosage: 600 MG DAILY
     Route: 048
     Dates: start: 20120912, end: 20120915
  17. LEPONEX / CLOZARIL [Suspect]
     Dosage: 300 MG, QD (MORNING DOSE OF 300MG OF CLOZARIL.)
     Route: 048
     Dates: start: 20120916, end: 20120916
  18. LEPONEX / CLOZARIL [Suspect]
     Dosage: 300 MG, DAILY
     Route: 048
     Dates: start: 20120917
  19. PURSENNID [Concomitant]
     Route: 048
  20. RISPERDAL [Concomitant]
     Dosage: 0.5 MG, UNK
     Route: 048
     Dates: start: 20120309
  21. AKINETON [Concomitant]
     Indication: SCHIZOPHRENIA, PARANOID TYPE
     Dosage: 2 MG, UNK
     Route: 048
  22. AKINETON [Concomitant]
     Dosage: 1 MG, UNK
     Route: 048
     Dates: start: 20120524
  23. SILECE [Concomitant]
     Indication: SCHIZOPHRENIA, PARANOID TYPE
     Dosage: 2 MG, UNK
     Route: 048
  24. SILECE [Concomitant]
     Dosage: 1 MG, UNK
     Route: 048
     Dates: start: 20120414
  25. MYSLEE [Concomitant]
     Indication: SCHIZOPHRENIA, PARANOID TYPE
     Dosage: 5 MG, UNK
     Route: 048
     Dates: start: 20120309
  26. LAXSORONE [Concomitant]
     Indication: CONSTIPATION
     Dosage: UNK
     Route: 048
     Dates: start: 20120309
  27. WYPAX [Concomitant]
     Indication: SCHIZOPHRENIA, PARANOID TYPE
     Dosage: 0.5 MG, UNK
     Route: 048
     Dates: start: 20120309

REACTIONS (6)
  - Fall [Recovered/Resolved]
  - Screaming [Unknown]
  - Petit mal epilepsy [Recovered/Resolved]
  - Foaming at mouth [Unknown]
  - Muscle rigidity [Unknown]
  - Salivary hypersecretion [Not Recovered/Not Resolved]
